FAERS Safety Report 19359887 (Version 2)
Quarter: 2021Q3

REPORT INFORMATION
  Report Type: Spontaneous
  Country: ES (occurrence: ES)
  Receive Date: 20210601
  Receipt Date: 20210901
  Transmission Date: 20211014
  Serious: Yes (Other)
  Sender: FDA-Public Use
  Company Number: ES-BAYER-2021-146371

PATIENT
  Age: 58 Year
  Sex: Female

DRUGS (1)
  1. JAYDESS [Suspect]
     Active Substance: LEVONORGESTREL
     Dosage: 14 ?G PER DAY CONTINUOUSLY
     Route: 015
     Dates: start: 20190422, end: 20210517

REACTIONS (8)
  - Haematosalpinx [None]
  - Ectopic pregnancy with contraceptive device [None]
  - Ruptured ectopic pregnancy [None]
  - Haemorrhage in pregnancy [None]
  - Drug ineffective [None]
  - Abdominal pain [None]
  - Ovarian cyst [None]
  - Amenorrhoea [None]

NARRATIVE: CASE EVENT DATE: 20210428
